FAERS Safety Report 14358552 (Version 1)
Quarter: 2018Q1

REPORT INFORMATION
  Report Type: Spontaneous
  Country: US (occurrence: US)
  Receive Date: 20180105
  Receipt Date: 20180105
  Transmission Date: 20180509
  Serious: No
  Sender: FDA-Public Use
  Company Number: US-SA-2017SA214697

PATIENT
  Age: 30 Year
  Sex: Female

DRUGS (2)
  1. DUPIXENT [Suspect]
     Active Substance: DUPILUMAB
     Indication: DERMATITIS ATOPIC
     Route: 058
     Dates: start: 201705, end: 20170701
  2. DUPIXENT [Suspect]
     Active Substance: DUPILUMAB
     Indication: DERMATITIS ATOPIC
     Route: 058
     Dates: start: 20170501, end: 20170501

REACTIONS (9)
  - Drug ineffective [Unknown]
  - Conjunctivitis [Recovered/Resolved]
  - Pruritus [Unknown]
  - Pain [Unknown]
  - Thyroid function test abnormal [Recovered/Resolved]
  - Erythema [Unknown]
  - Asthenia [Recovered/Resolved]
  - Dermatitis atopic [Unknown]
  - Lethargy [Recovered/Resolved]

NARRATIVE: CASE EVENT DATE: 2017
